FAERS Safety Report 7474559-4 (Version None)
Quarter: 2011Q2

REPORT INFORMATION
  Report Type: 
  Country: None (occurrence: None)
  Receive Date: 20110503
  Receipt Date: 20110419
  Transmission Date: 20111010
  Serious: Yes (Hospitalization)
  Sender: FDA-Public Use
  Company Number: UTC-005942

PATIENT
  Age: 1 Month
  Sex: Female
  Weight: 3.5 kg

DRUGS (2)
  1. MEROPENEM [Suspect]
     Indication: PROPHYLAXIS
     Dosage: 20 MG/KG, INTRAVENOUS
     Route: 042
     Dates: start: 20110311, end: 20110311
  2. REMODULIN [Suspect]
     Indication: PULMONARY HYPERTENSION
     Dosage: 47.52 UG/KG (0.33 UG/KG, 1 IN 1 MIN), SUBCUTANEOUS
     Route: 058

REACTIONS (1)
  - ANAPHYLACTIC SHOCK [None]
